FAERS Safety Report 22225255 (Version 2)
Quarter: 2023Q2

REPORT INFORMATION
  Report Type: Spontaneous
  Country: FR (occurrence: None)
  Receive Date: 20230418
  Receipt Date: 20230428
  Transmission Date: 20230722
  Serious: Yes (Hospitalization)
  Sender: FDA-Public Use
  Company Number: FR-ROCHE-3330119

PATIENT
  Sex: Male
  Weight: 71 kg

DRUGS (2)
  1. TECENTRIQ [Suspect]
     Active Substance: ATEZOLIZUMAB
     Indication: Hepatocellular carcinoma
     Dosage: FORM STRENGTH: 1200MG/20ML FLA 1
     Route: 065
     Dates: start: 20210323, end: 20230105
  2. AVASTIN [Suspect]
     Active Substance: BEVACIZUMAB
     Indication: Hepatocellular carcinoma
     Route: 065
     Dates: start: 20210323, end: 20230125

REACTIONS (4)
  - Fatigue [Unknown]
  - Back pain [Unknown]
  - Pyrexia [Unknown]
  - Gastrointestinal disorder [Unknown]
